FAERS Safety Report 4368685-6 (Version None)
Quarter: 2004Q2

REPORT INFORMATION
  Report Type: 
  Country: None (occurrence: None)
  Receive Date: 20040602
  Receipt Date: 20040519
  Transmission Date: 20050107
  Serious: Yes (Hospitalization)
  Sender: FDA-Public Use
  Company Number: 2004-02259

PATIENT
  Age: 74 Year
  Sex: Female

DRUGS (4)
  1. METRONIDAZOLE [Suspect]
     Indication: CROHN'S DISEASE
     Dosage: 1000 MG, DAILY, ORAL
     Route: 048
  2. METRONIDAZOLE [Suspect]
     Indication: FEMALE GENITAL-DIGESTIVE TRACT FISTULA
     Dosage: 1000 MG, DAILY, ORAL
     Route: 048
  3. MESALAMINE [Concomitant]
  4. CIPROFLOXACIN [Concomitant]

REACTIONS (2)
  - ENCEPHALOPATHY [None]
  - NERVOUS SYSTEM DISORDER [None]
